FAERS Safety Report 13722790 (Version 1)
Quarter: 2017Q3

REPORT INFORMATION
  Report Type: Spontaneous
  Country: US (occurrence: US)
  Receive Date: 20170706
  Receipt Date: 20170706
  Transmission Date: 20171127
  Serious: No
  Sender: FDA-Public Use
  Company Number: US-JNJFOC-20170613165

PATIENT
  Age: 39 Year
  Sex: Female

DRUGS (7)
  1. VITAMIN B12 [Concomitant]
     Active Substance: CYANOCOBALAMIN
     Route: 065
  2. SIMPONI [Suspect]
     Active Substance: GOLIMUMAB
     Indication: RHEUMATOID ARTHRITIS
     Route: 058
  3. FOLIC ACID. [Concomitant]
     Active Substance: FOLIC ACID
     Route: 065
  4. MELATONIN [Concomitant]
     Active Substance: MELATONIN
     Route: 065
  5. DIPHENHYDRAMINE HCL [Concomitant]
     Active Substance: DIPHENHYDRAMINE HYDROCHLORIDE
     Route: 065
  6. AMBIEN [Concomitant]
     Active Substance: ZOLPIDEM TARTRATE
     Route: 065
  7. VITAMIN D3 [Concomitant]
     Active Substance: CHOLECALCIFEROL
     Route: 065

REACTIONS (1)
  - Musculoskeletal stiffness [Unknown]
